FAERS Safety Report 9493758 (Version 1)
Quarter: 2013Q3

REPORT INFORMATION
  Report Type: Spontaneous
  Country: US (occurrence: US)
  Receive Date: 20130902
  Receipt Date: 20130902
  Transmission Date: 20140515
  Serious: Yes (Hospitalization)
  Sender: FDA-Public Use
  Company Number: US-JNJFOC-20130815280

PATIENT
  Age: 45 Year
  Sex: Male

DRUGS (1)
  1. XARELTO [Suspect]
     Indication: DEEP VEIN THROMBOSIS
     Route: 048
     Dates: start: 2013, end: 201308

REACTIONS (3)
  - Renal impairment [Unknown]
  - Thrombosis [Unknown]
  - Local swelling [Recovering/Resolving]
